FAERS Safety Report 17237948 (Version 1)
Quarter: 2020Q1

REPORT INFORMATION
  Report Type: Spontaneous
  Country: US (occurrence: US)
  Receive Date: 20200106
  Receipt Date: 20200106
  Transmission Date: 20200409
  Serious: No
  Sender: FDA-Public Use
  Company Number: US-PACIRA-201800111

PATIENT
  Age: 25 Year
  Sex: Female
  Weight: 80.7 kg

DRUGS (1)
  1. EXPAREL [Suspect]
     Active Substance: BUPIVACAINE
     Indication: SURGERY
     Dosage: UNK UNK, SINGLE, FREQUENCY : SINGLE

REACTIONS (1)
  - Postoperative wound complication [Unknown]

NARRATIVE: CASE EVENT DATE: 20181211
